FAERS Safety Report 10204122 (Version 2)
Quarter: 2014Q2

REPORT INFORMATION
  Report Type: Spontaneous
  Country: US (occurrence: US)
  Receive Date: 20140529
  Receipt Date: 20140529
  Transmission Date: 20141212
  Serious: Yes (Other)
  Sender: FDA-Public Use
  Company Number: US-ASTRAZENECA-2012SE75957

PATIENT
  Age: 58 Year
  Sex: Female

DRUGS (3)
  1. METOPROLOL [Suspect]
     Route: 048
  2. SYMBICORT [Suspect]
     Dosage: 80/4.5 MCG, UNKNOWN
     Route: 055
  3. TOPROL XL [Suspect]
     Route: 048

REACTIONS (2)
  - Ankle fracture [Unknown]
  - Drug dose omission [Unknown]
